FAERS Safety Report 5238837-1 (Version None)
Quarter: 2007Q1

REPORT INFORMATION
  Report Type: 
  Country: None (occurrence: None)
  Receive Date: 20070215
  Receipt Date: 20070131
  Transmission Date: 20070707
  Serious: Yes (Life-Threatening)
  Sender: FDA-Public Use
  Company Number: TR-PFIZER INC-2007009552

PATIENT
  Sex: Female

DRUGS (3)
  1. CETIRIZINE HCL [Suspect]
  2. KETOTIFEN [Concomitant]
  3. PSEUDOEPHEDRINE HYDROCHLORIDE [Concomitant]

REACTIONS (4)
  - ERYTHEMA [None]
  - RHINITIS ALLERGIC [None]
  - URTICARIA CHRONIC [None]
  - URTICARIA CONTACT [None]
